FAERS Safety Report 15689952 (Version 2)
Quarter: 2018Q4

REPORT INFORMATION
  Report Type: Spontaneous
  Country: CA (occurrence: CA)
  Receive Date: 20181205
  Receipt Date: 20181206
  Transmission Date: 20190205
  Serious: Yes (Other)
  Sender: FDA-Public Use
  Company Number: CA-CELLTRION INC.-2018CA021170

PATIENT

DRUGS (7)
  1. INFLECTRA [Suspect]
     Active Substance: INFLIXIMAB-DYYB
     Indication: PSORIATIC ARTHROPATHY
     Dosage: 800 MG, ( 800 MG/Q 0, 2, 6 WEEKS) THEN EVERY 8 WEEKS
     Route: 042
     Dates: start: 20180621
  2. INFLECTRA [Suspect]
     Active Substance: INFLIXIMAB-DYYB
     Dosage: 800 MG, CYCLIC (Q 0, 2, 6 WEEKS, THEN EVERY 8 WEEKS)
     Route: 042
     Dates: start: 20181004
  3. GABAPENTIN. [Concomitant]
     Active Substance: GABAPENTIN
     Dosage: UNK
  4. INFLECTRA [Suspect]
     Active Substance: INFLIXIMAB-DYYB
     Dosage: UNK
     Route: 042
     Dates: start: 20180809
  5. PREDNISONE. [Concomitant]
     Active Substance: PREDNISONE
     Dosage: UNK
  6. INFLECTRA [Suspect]
     Active Substance: INFLIXIMAB-DYYB
     Dosage: 800 MG, ( 800 MG/Q 0, 2, 6 WEEKS) THEN EVERY 8 WEEKS)
     Route: 042
     Dates: start: 20180710
  7. INFLECTRA [Suspect]
     Active Substance: INFLIXIMAB-DYYB
     Dosage: UNK
     Route: 042
     Dates: start: 20180809

REACTIONS (7)
  - Polyp [Unknown]
  - Dyspnoea [Unknown]
  - Nasopharyngitis [Not Recovered/Not Resolved]
  - Heart rate irregular [Unknown]
  - Oxygen saturation abnormal [Unknown]
  - Chronic obstructive pulmonary disease [Unknown]
  - Blood pressure fluctuation [Unknown]
